FAERS Safety Report 22336931 (Version 2)
Quarter: 2023Q2

REPORT INFORMATION
  Report Type: Spontaneous
  Country: US (occurrence: US)
  Receive Date: 20230518
  Receipt Date: 20230525
  Transmission Date: 20230721
  Serious: Yes (Other)
  Sender: FDA-Public Use
  Company Number: US-ABBVIE-4771226

PATIENT
  Sex: Male

DRUGS (1)
  1. LUPRON [Suspect]
     Active Substance: LEUPROLIDE ACETATE
     Indication: Prostate cancer
     Route: 065

REACTIONS (6)
  - Deafness [Unknown]
  - Hot flush [Unknown]
  - Fluid retention [Unknown]
  - Arthritis [Unknown]
  - Depression [Unknown]
  - Weight increased [Unknown]
